FAERS Safety Report 23718756 (Version 9)
Quarter: 2024Q4

REPORT INFORMATION
  Report Type: Report from Study
  Country: CO (occurrence: CO)
  Receive Date: 20240408
  Receipt Date: 20241108
  Transmission Date: 20250115
  Serious: Yes (Other)
  Sender: TAKEDA
  Company Number: CO-TAKEDA-2024TUS008716

PATIENT
  Age: 21 Year
  Sex: Female
  Weight: 48 kg

DRUGS (1)
  1. VEDOLIZUMAB [Suspect]
     Active Substance: VEDOLIZUMAB
     Indication: Colitis ulcerative
     Dosage: 300 MILLIGRAM
     Route: 042
     Dates: start: 20240124, end: 20241022

REACTIONS (21)
  - Haematochezia [Recovered/Resolved]
  - Rectal haemorrhage [Unknown]
  - Colitis ulcerative [Unknown]
  - Asthenia [Recovered/Resolved]
  - Stress [Unknown]
  - Abdominal pain [Recovered/Resolved]
  - Haemorrhoids [Unknown]
  - Malaise [Unknown]
  - Somnolence [Unknown]
  - Gastritis [Recovered/Resolved]
  - Menstruation delayed [Recovered/Resolved]
  - Diarrhoea [Recovered/Resolved]
  - Haemorrhage [Recovered/Resolved]
  - Secretion discharge [Recovered/Resolved]
  - Lip blister [Unknown]
  - Abdominal pain upper [Recovered/Resolved]
  - Drug ineffective [Unknown]
  - Nasal congestion [Unknown]
  - Oropharyngeal pain [Unknown]
  - Fatigue [Unknown]
  - Pyrexia [Recovered/Resolved]

NARRATIVE: CASE EVENT DATE: 20240124
